FAERS Safety Report 6301529-1 (Version None)
Quarter: 2009Q3

REPORT INFORMATION
  Report Type: 
  Country: None (occurrence: None)
  Receive Date: 20090806
  Receipt Date: 20090806
  Transmission Date: 20100115
  Serious: No
  Sender: FDA-Public Use
  Company Number: None

PATIENT
  Age: 67 Year
  Sex: Female
  Weight: 77.1115 kg

DRUGS (5)
  1. LEVAQUIN [Suspect]
     Indication: CHRONIC OBSTRUCTIVE PULMONARY DISEASE
     Dosage: 1 TABLET/DAY FOR 10 DAYS
     Dates: start: 20090707
  2. LEVAQUIN [Suspect]
     Indication: SINUSITIS
     Dosage: 1 TABLET/DAY FOR 10 DAYS
     Dates: start: 20090707
  3. LEVAQUIN [Suspect]
     Indication: CHRONIC OBSTRUCTIVE PULMONARY DISEASE
     Dosage: 1 TABLET/DAY FOR 10 DAYS
     Dates: start: 20090708
  4. LEVAQUIN [Suspect]
     Indication: SINUSITIS
     Dosage: 1 TABLET/DAY FOR 10 DAYS
     Dates: start: 20090708
  5. LEVAQUIN [Suspect]
     Dosage: USED 1/2 TAB
     Dates: start: 20090710

REACTIONS (6)
  - ABASIA [None]
  - CONTUSION [None]
  - JOINT CREPITATION [None]
  - MASS [None]
  - OEDEMA PERIPHERAL [None]
  - TENDON DISORDER [None]
